FAERS Safety Report 19239250 (Version 1)
Quarter: 2021Q2

REPORT INFORMATION
  Report Type: Other
  Country: US (occurrence: US)
  Receive Date: 20210510
  Receipt Date: 20210510
  Transmission Date: 20210717
  Serious: Yes (Hospitalization)
  Sender: FDA-Public Use
  Company Number: US-B.BRAUN MEDICAL INC.-2110378

PATIENT
  Age: 68 Year
  Sex: Male

DRUGS (5)
  1. ZOLEDRONIC ACID [Concomitant]
     Active Substance: ZOLEDRONIC ACID
  2. CALCITONIN [Concomitant]
     Active Substance: CALCITONIN
  3. NIVOLUMAB [Concomitant]
     Active Substance: NIVOLUMAB
  4. IPILIMUMAB [Concomitant]
     Active Substance: IPILIMUMAB
  5. SODIUM CHLORIDE INJECTIONS USP 0264?7800?00 0264?7800?10 [Suspect]
     Active Substance: SODIUM CHLORIDE
     Indication: HYPERCALCAEMIA
     Route: 042

REACTIONS (1)
  - Drug ineffective [None]
